FAERS Safety Report 6505853-9 (Version None)
Quarter: 2009Q4

REPORT INFORMATION
  Report Type: 
  Country: None (occurrence: None)
  Receive Date: 20091218
  Receipt Date: 20091208
  Transmission Date: 20100525
  Serious: No
  Sender: FDA-Public Use
  Company Number: DK-ELI_LILLY_AND_COMPANY-DK200912002030

PATIENT
  Sex: Male

DRUGS (2)
  1. ZYPREXA [Suspect]
     Indication: SCHIZOPHRENIA
     Route: 065
  2. ZYPREXA [Suspect]
     Route: 065

REACTIONS (1)
  - THROMBOCYTOPENIA [None]
